FAERS Safety Report 14561992 (Version 1)
Quarter: 2018Q1

REPORT INFORMATION
  Report Type: Spontaneous
  Country: US (occurrence: US)
  Receive Date: 20180221
  Receipt Date: 20180221
  Transmission Date: 20180509
  Serious: No
  Sender: FDA-Public Use
  Company Number: None

PATIENT
  Age: 78 Year
  Sex: Female
  Weight: 60.33 kg

DRUGS (1)
  1. BASAGLAR [Suspect]
     Active Substance: INSULIN GLARGINE
     Indication: TYPE 2 DIABETES MELLITUS
     Dosage: AT BEDTIME GIVEN INTO/UNDER THE SKIN

REACTIONS (4)
  - Product quality issue [None]
  - Blood glucose increased [None]
  - Product substitution issue [None]
  - Device defective [None]

NARRATIVE: CASE EVENT DATE: 20180201
